FAERS Safety Report 24009000 (Version 1)
Quarter: 2024Q2

REPORT INFORMATION
  Report Type: Report from Study
  Country: AU (occurrence: AU)
  Receive Date: 20240625
  Receipt Date: 20240625
  Transmission Date: 20240715
  Serious: Yes (Hospitalization)
  Sender: FDA-Public Use
  Company Number: AU-MYLANLABS-2024M1054979

PATIENT

DRUGS (2)
  1. QUETIAPINE [Suspect]
     Active Substance: QUETIAPINE
     Indication: Product used for unknown indication
     Dosage: UNK
     Route: 048
  2. ORPHENADRINE [Suspect]
     Active Substance: ORPHENADRINE
     Indication: Intentional overdose
     Dosage: RECEIVED IMMEDIATE RELEASE
     Route: 048

REACTIONS (5)
  - Tachycardia [Unknown]
  - Mydriasis [Unknown]
  - Somnolence [Unknown]
  - Poisoning deliberate [Unknown]
  - Intentional overdose [Unknown]
